FAERS Safety Report 4642917-9 (Version None)
Quarter: 2005Q2

REPORT INFORMATION
  Report Type: 
  Country: None (occurrence: None)
  Receive Date: 20050421
  Receipt Date: 20050413
  Transmission Date: 20051028
  Serious: Yes (Hospitalization)
  Sender: FDA-Public Use
  Company Number: 10847

PATIENT
  Age: 60 Year
  Sex: Female

DRUGS (3)
  1. METHOTREXATE [Suspect]
     Indication: RHEUMATOID ARTHRITIS
     Dosage: 7.5 MG WEEKLY IM
     Route: 030
     Dates: start: 20021114, end: 20050110
  2. METHYLPREDNISOLONE [Suspect]
     Indication: RHEUMATOID ARTHRITIS
     Dosage: 2 MG PO
     Route: 048
     Dates: start: 20000101
  3. ETANERCEPT [Suspect]
     Indication: RHEUMATOID ARTHRITIS
     Dosage: 25 MG 2/WK SC
     Route: 058
     Dates: start: 20030131, end: 20050110

REACTIONS (1)
  - SEPTIC ARTHRITIS STAPHYLOCOCCAL [None]
